FAERS Safety Report 8247374-1 (Version None)
Quarter: 2012Q1

REPORT INFORMATION
  Report Type: 
  Country: None (occurrence: None)
  Receive Date: 20120330
  Receipt Date: 20120328
  Transmission Date: 20120608
  Serious: Yes (Other)
  Sender: FDA-Public Use
  Company Number: DK-PFIZER INC-2011256419

PATIENT
  Age: 32 Year
  Sex: Female
  Weight: 56 kg

DRUGS (3)
  1. ZIPRASIDONE HYDROCHLORIDE [Suspect]
     Indication: PSYCHOTIC DISORDER
     Dosage: 80 MG DAILY
     Dates: start: 20080201, end: 20090924
  2. RISPERDAL [Suspect]
     Dosage: UNK
  3. ZIPRASIDONE HYDROCHLORIDE [Suspect]
     Dosage: UNK, ONCE DAILY (NIGHT)
     Dates: start: 20091225

REACTIONS (4)
  - TOURETTE'S DISORDER [None]
  - INFECTION [None]
  - WEIGHT INCREASED [None]
  - SEDATION [None]
